FAERS Safety Report 25154870 (Version 1)
Quarter: 2025Q2

REPORT INFORMATION
  Report Type: Spontaneous
  Country: US (occurrence: None)
  Receive Date: 20250403
  Receipt Date: 20250403
  Transmission Date: 20250716
  Serious: Yes (Hospitalization)
  Sender: FDA-CTU
  Company Number: None

PATIENT
  Age: 36 Year
  Sex: Male
  Weight: 87 kg

DRUGS (1)
  1. SPRYCEL [Suspect]
     Active Substance: DASATINIB

REACTIONS (6)
  - Pneumonia [None]
  - Rhinovirus infection [None]
  - Mucosal inflammation [None]
  - Mouth ulceration [None]
  - Graft versus host disease [None]
  - Herpes virus infection [None]

NARRATIVE: CASE EVENT DATE: 20250310
